FAERS Safety Report 23645843 (Version 5)
Quarter: 2025Q3

REPORT INFORMATION
  Report Type: Spontaneous
  Country: CA (occurrence: CA)
  Receive Date: 20240319
  Receipt Date: 20250803
  Transmission Date: 20251021
  Serious: Yes (Other)
  Sender: ALEXION PHARMACEUTICALS
  Company Number: 2024A061204

PATIENT
  Age: 41 Year
  Sex: Female
  Weight: 95.6 kg

DRUGS (8)
  1. QUETIAPINE FUMARATE [Suspect]
     Active Substance: QUETIAPINE FUMARATE
     Indication: Social anxiety disorder
     Dosage: 300 MILLIGRAM, QD  AT BEDTIME
  2. QUETIAPINE FUMARATE [Suspect]
     Active Substance: QUETIAPINE FUMARATE
     Indication: Major depression
  3. QUETIAPINE FUMARATE [Suspect]
     Active Substance: QUETIAPINE FUMARATE
     Indication: Antipsychotic therapy
  4. BACLOFEN [Concomitant]
     Active Substance: BACLOFEN
     Indication: Social anxiety disorder
     Dosage: 55 MILLIGRAM, QD
     Route: 065
  5. KETAMINE [Concomitant]
     Active Substance: KETAMINE
     Indication: Major depression
  6. LORAZEPAM [Concomitant]
     Active Substance: LORAZEPAM
     Indication: Antipsychotic therapy
     Dosage: 2 MILLIGRAM, QD AT BEDTIME
     Route: 065
  7. SUMATRIPTAN [Concomitant]
     Active Substance: SUMATRIPTAN
     Indication: Product used for unknown indication
     Route: 065
  8. ZOPICLONE [Concomitant]
     Active Substance: ZOPICLONE
     Indication: Product used for unknown indication
     Dosage: 22.5 MILLIGRAM, QD AT BEDTIME
     Route: 065

REACTIONS (2)
  - Metabolic disorder [Recovered/Resolved]
  - Obesity [Recovered/Resolved]
